FAERS Safety Report 6222543-0 (Version None)
Quarter: 2009Q2

REPORT INFORMATION
  Report Type: 
  Country: None (occurrence: None)
  Receive Date: 20090609
  Receipt Date: 20090527
  Transmission Date: 20091009
  Serious: Yes (Hospitalization)
  Sender: FDA-Public Use
  Company Number: 230254M09USA

PATIENT
  Age: 54 Year
  Sex: Female
  Weight: 45 kg

DRUGS (5)
  1. REBIF [Suspect]
     Indication: MULTIPLE SCLEROSIS
     Dosage: 44 MCG,
     Dates: start: 20020628, end: 20090227
  2. BACLOFEN [Concomitant]
  3. DETROL LA [Concomitant]
  4. ZOLOFT [Concomitant]
  5. ALPRAZOLAM [Concomitant]

REACTIONS (1)
  - CHOLELITHIASIS [None]
